FAERS Safety Report 5745495-6 (Version None)
Quarter: 2008Q2

REPORT INFORMATION
  Report Type: 
  Country: None (occurrence: None)
  Receive Date: 20080521
  Receipt Date: 20080509
  Transmission Date: 20081010
  Serious: Yes (Death)
  Sender: FDA-Public Use
  Company Number: KR-ELI_LILLY_AND_COMPANY-KR200805001762

PATIENT
  Age: 18 Year
  Sex: Male

DRUGS (6)
  1. PROZAC [Suspect]
     Indication: OBSESSIVE-COMPULSIVE DISORDER
     Dosage: 20 MG, DAILY (1/D)
     Route: 048
     Dates: start: 20070212, end: 20070201
  2. PROZAC [Suspect]
     Dosage: 40 MG, DAILY (1/D)
     Route: 048
     Dates: start: 20070201, end: 20070201
  3. PROZAC [Suspect]
     Dosage: 60 MG, DAILY (1/D)
     Route: 048
     Dates: start: 20070201, end: 20070201
  4. PROZAC [Suspect]
     Dosage: 40 MG, DAILY (1/D)
     Route: 048
     Dates: start: 20070201
  5. HYPNOTICS AND SEDATIVES [Concomitant]
     Dosage: UNK, UNK
     Route: 048
  6. ALCOHOL [Concomitant]
     Dates: start: 20070309

REACTIONS (5)
  - ALCOHOL ABUSE [None]
  - DYSPEPSIA [None]
  - FALL [None]
  - SUICIDAL IDEATION [None]
  - VOMITING [None]
